FAERS Safety Report 24063665 (Version 1)
Quarter: 2024Q3

REPORT INFORMATION
  Report Type: Report from Study
  Country: KR (occurrence: KR)
  Receive Date: 20240709
  Receipt Date: 20240709
  Transmission Date: 20241017
  Serious: Yes (Hospitalization, Other)
  Sender: TAKEDA
  Company Number: KR-TAKEDA-2024TUS067418

PATIENT
  Age: 76 Year
  Sex: Female
  Weight: 46.9 kg

DRUGS (13)
  1. VEDOLIZUMAB [Suspect]
     Active Substance: VEDOLIZUMAB
     Indication: Colitis ulcerative
     Dosage: 300 MILLIGRAM
     Route: 042
     Dates: start: 20220211
  2. KANARB [Concomitant]
     Indication: Hypertension
     Dosage: 60 MILLIGRAM, QD
     Route: 048
     Dates: start: 20200611
  3. XANAX [Concomitant]
     Active Substance: ALPRAZOLAM
     Indication: Adjustment disorder with anxiety
     Dosage: 0.25 MILLIGRAM, QD
     Route: 048
     Dates: start: 20220411
  4. XANAX [Concomitant]
     Active Substance: ALPRAZOLAM
     Dosage: 0.125 MILLIGRAM, QD
     Route: 048
     Dates: start: 20220411
  5. K CAB [Concomitant]
     Indication: Prophylaxis
     Dosage: 50 MILLIGRAM
     Route: 048
     Dates: start: 20220521
  6. Trestan [Concomitant]
     Indication: Decreased appetite
     Dosage: UNK
     Route: 048
     Dates: start: 20220521
  7. KONIL [Concomitant]
     Indication: Hypertension
     Dosage: 4 MILLIGRAM, QD
     Route: 048
     Dates: start: 20220820
  8. AZABIO [Concomitant]
     Dosage: 25 MILLIGRAM, QD
     Route: 048
     Dates: start: 20220521
  9. ALVERIX [Concomitant]
     Dosage: UNK UNK, BID
     Route: 048
     Dates: start: 20200611
  10. PENTASA [Concomitant]
     Active Substance: MESALAMINE
     Dosage: 1 GRAM, QD
     Route: 054
     Dates: start: 20170613
  11. PENTASA [Concomitant]
     Active Substance: MESALAMINE
     Dosage: 1 GRAM, BID
     Route: 048
     Dates: start: 20200609
  12. POLYBUTINE [Concomitant]
     Dosage: 300 MILLIGRAM, BID
     Route: 048
     Dates: start: 20180320
  13. COLAZAL [Concomitant]
     Active Substance: BALSALAZIDE DISODIUM
     Dosage: 750 MILLIGRAM, BID
     Route: 048
     Dates: start: 20180710

REACTIONS (4)
  - Melaena [Recovered/Resolved]
  - Asthenia [Recovered/Resolved]
  - Adjustment disorder with anxiety [Recovering/Resolving]
  - Decreased appetite [Recovering/Resolving]

NARRATIVE: CASE EVENT DATE: 20220318
